FAERS Safety Report 18235483 (Version 1)
Quarter: 2020Q3

REPORT INFORMATION
  Report Type: Spontaneous
  Country: US (occurrence: US)
  Receive Date: 20200905
  Receipt Date: 20200905
  Transmission Date: 20201103
  Serious: Yes (Other)
  Sender: FDA-Public Use
  Company Number: US-ACCORD-199330

PATIENT
  Age: 70 Year
  Sex: Male
  Weight: 68.04 kg

DRUGS (1)
  1. SIMVASTATIN. [Suspect]
     Active Substance: SIMVASTATIN
     Indication: BLOOD CHOLESTEROL
     Route: 048
     Dates: start: 2010, end: 201911

REACTIONS (9)
  - Weight decreased [Unknown]
  - Impaired quality of life [Unknown]
  - Asthenia [Not Recovered/Not Resolved]
  - Blood creatine phosphokinase increased [Recovered/Resolved]
  - Skin odour abnormal [Unknown]
  - Muscle atrophy [Not Recovered/Not Resolved]
  - Ketoacidosis [Unknown]
  - Fatigue [Unknown]
  - General physical condition abnormal [Unknown]

NARRATIVE: CASE EVENT DATE: 201910
